FAERS Safety Report 13109881 (Version 1)
Quarter: 2017Q1

REPORT INFORMATION
  Report Type: Spontaneous
  Country: US (occurrence: US)
  Receive Date: 20170112
  Receipt Date: 20170112
  Transmission Date: 20170428
  Serious: Yes (Life-Threatening, Hospitalization, Other)
  Sender: FDA-Public Use
  Company Number: None

PATIENT
  Age: 11 Year
  Sex: Female
  Weight: 58.6 kg

DRUGS (1)
  1. PROMETHAZINE [Suspect]
     Active Substance: PROMETHAZINE\PROMETHAZINE HYDROCHLORIDE
     Indication: ANTIEMETIC SUPPORTIVE CARE
     Dates: start: 20170101, end: 20170101

REACTIONS (5)
  - Incoherent [None]
  - Generalised tonic-clonic seizure [None]
  - Hallucination [None]
  - Cognitive disorder [None]
  - Postictal state [None]

NARRATIVE: CASE EVENT DATE: 20170101
